FAERS Safety Report 21196227 (Version 3)
Quarter: 2022Q3

REPORT INFORMATION
  Report Type: Spontaneous
  Country: US (occurrence: US)
  Receive Date: 20220810
  Receipt Date: 20220831
  Transmission Date: 20221026
  Serious: Yes (Other)
  Sender: FDA-Public Use
  Company Number: US-PFIZER INC-202201049222

PATIENT
  Age: 73 Year
  Sex: Male
  Weight: 102.06 kg

DRUGS (2)
  1. DILANTIN [Suspect]
     Active Substance: PHENYTOIN
     Indication: Generalised tonic-clonic seizure
     Dosage: 600 MG, DAILY
     Dates: end: 20220417
  2. TOPAMAX [Concomitant]
     Active Substance: TOPIRAMATE
     Indication: Tremor
     Dosage: 50 MG, 3X/DAY
     Dates: start: 202004

REACTIONS (5)
  - Hypersensitivity pneumonitis [Not Recovered/Not Resolved]
  - Neuropathy peripheral [Unknown]
  - Hypersensitivity [Unknown]
  - Inflammation [Unknown]
  - Quality of life decreased [Unknown]

NARRATIVE: CASE EVENT DATE: 20220417
